FAERS Safety Report 17834536 (Version 1)
Quarter: 2020Q2

REPORT INFORMATION
  Report Type: Spontaneous
  Country: US (occurrence: US)
  Receive Date: 20200528
  Receipt Date: 20200528
  Transmission Date: 20200714
  Serious: No
  Sender: FDA-Public Use
  Company Number: US-PFIZER INC-2020209396

PATIENT

DRUGS (2)
  1. TESSALON [Suspect]
     Active Substance: BENZONATATE
     Dosage: UNK
  2. BENZONATATE. [Suspect]
     Active Substance: BENZONATATE
     Dosage: 100 MG, 3X/DAY

REACTIONS (4)
  - Memory impairment [Unknown]
  - Emphysema [Unknown]
  - Asthma [Unknown]
  - Chronic obstructive pulmonary disease [Unknown]
